FAERS Safety Report 9129626 (Version 1)
Quarter: 2013Q1

REPORT INFORMATION
  Report Type: Spontaneous
  Country: SE (occurrence: SE)
  Receive Date: 20130228
  Receipt Date: 20130228
  Transmission Date: 20140127
  Serious: Yes (Other)
  Sender: FDA-Public Use
  Company Number: SE-ELI_LILLY_AND_COMPANY-SE201302006966

PATIENT
  Age: 52 Year
  Sex: Male
  Weight: 116 kg

DRUGS (2)
  1. BYDUREON [Suspect]
     Indication: TYPE 2 DIABETES MELLITUS
     Dosage: 2 MG, WEEKLY (1/W)
     Route: 058
     Dates: start: 20120330, end: 20130201
  2. HUMALOG MIX [Concomitant]
     Dosage: 48 DF, QD

REACTIONS (2)
  - Glycosylated haemoglobin increased [Unknown]
  - Injection site nodule [Not Recovered/Not Resolved]
